FAERS Safety Report 9648766 (Version 1)
Quarter: 2013Q4

REPORT INFORMATION
  Report Type: Report from Study
  Country: US (occurrence: US)
  Receive Date: 20131028
  Receipt Date: 20131028
  Transmission Date: 20140711
  Serious: Yes (Death)
  Sender: FDA-Public Use
  Company Number: US-ROCHE-1292177

PATIENT
  Sex: Female

DRUGS (6)
  1. AVASTIN [Suspect]
     Indication: OVARIAN CANCER
     Dosage: IN 100 ML NORMAL SALINE
     Route: 042
     Dates: start: 20100315, end: 20100315
  2. ALOXI [Concomitant]
     Dosage: IN 50ML NORMAL SALINE
     Route: 042
     Dates: start: 20100315
  3. DECADRON [Concomitant]
     Dosage: IN 50ML NORMAL SALINE
     Route: 042
     Dates: start: 20100315
  4. ZOMETA [Concomitant]
     Dosage: IN 100ML NORMAL SALINE
     Route: 042
     Dates: start: 20100315
  5. HEPARIN [Concomitant]
     Dosage: 500 UNITS
     Route: 042
     Dates: start: 20100315
  6. NORMAL SALINE [Concomitant]

REACTIONS (1)
  - Death [Fatal]
